FAERS Safety Report 5083695-1 (Version None)
Quarter: 2006Q3

REPORT INFORMATION
  Report Type: 
  Country: None (occurrence: None)
  Receive Date: 20060720
  Receipt Date: 20060501
  Transmission Date: 20061208
  Serious: Yes (Other)
  Sender: FDA-Public Use
  Company Number: 2006059982

PATIENT
  Sex: Female

DRUGS (2)
  1. CELEBREX [Suspect]
     Indication: BACK PAIN
     Dates: start: 20031118
  2. CELEBREX [Suspect]
     Indication: PAIN IN EXTREMITY
     Dates: start: 20031118

REACTIONS (1)
  - CEREBROVASCULAR ACCIDENT [None]
